FAERS Safety Report 4685431-7 (Version None)
Quarter: 2005Q2

REPORT INFORMATION
  Report Type: 
  Country: None (occurrence: None)
  Receive Date: 20050608
  Receipt Date: 20050602
  Transmission Date: 20051028
  Serious: Yes (Other)
  Sender: FDA-Public Use
  Company Number: PHHO2005CA08930

PATIENT
  Sex: Female

DRUGS (1)
  1. CLOZARIL [Suspect]
     Route: 048
     Dates: start: 20050118, end: 20050511

REACTIONS (2)
  - DIABETES MELLITUS [None]
  - OBESITY [None]
